FAERS Safety Report 9516363 (Version 1)
Quarter: 2013Q1

REPORT INFORMATION
  Report Type: Spontaneous
  Country: US (occurrence: None)
  Receive Date: 20130305
  Receipt Date: 20130305
  Transmission Date: 20140127
  Serious: Yes (Other)
  Sender: FDA-Public Use
  Company Number: 163-21880-12113358

PATIENT
  Age: 78 Year
  Sex: Female

DRUGS (9)
  1. REVLIMID [Suspect]
     Indication: PLASMA CELL MYELOMA
     Dosage: 14 IN 14 D
     Route: 048
     Dates: start: 20110425
  2. ASPIRIN [Concomitant]
  3. COLACE [Concomitant]
  4. DEXAMETHASONE [Concomitant]
  5. FENTANYL [Concomitant]
  6. FISH OIL [Concomitant]
  7. LISINOPRIL [Concomitant]
  8. SYNTHROID [Concomitant]
  9. ZOMETA [Concomitant]

REACTIONS (1)
  - Pneumonia [None]
